FAERS Safety Report 18739599 (Version 3)
Quarter: 2021Q1

REPORT INFORMATION
  Report Type: Spontaneous
  Country: US (occurrence: US)
  Receive Date: 20210114
  Receipt Date: 20210202
  Transmission Date: 20210419
  Serious: No
  Sender: FDA-Public Use
  Company Number: US-BAYER-2021-000019

PATIENT
  Age: 77 Year
  Sex: Female

DRUGS (1)
  1. MIRALAX [Suspect]
     Active Substance: POLYETHYLENE GLYCOL 3350
     Indication: GASTROINTESTINAL DISORDER
     Dosage: 1 DF
     Route: 048

REACTIONS (5)
  - Abnormal faeces [Unknown]
  - Dyschezia [None]
  - Bowel movement irregularity [None]
  - Contraindicated product administered [None]
  - Wrong technique in product usage process [None]
